FAERS Safety Report 6769571-4 (Version None)
Quarter: 2010Q2

REPORT INFORMATION
  Report Type: 
  Country: None (occurrence: None)
  Receive Date: 20100615
  Receipt Date: 20100602
  Transmission Date: 20101027
  Serious: Yes (Other)
  Sender: FDA-Public Use
  Company Number: PHHY2010AR34678

PATIENT
  Sex: Male

DRUGS (8)
  1. EXELON [Suspect]
     Indication: DEMENTIA ALZHEIMER'S TYPE
     Dosage: 4.6 MG, QD
     Route: 062
     Dates: start: 20100520
  2. MEDOCOR [Concomitant]
  3. ASPIRIN [Concomitant]
  4. ATENOLOL [Concomitant]
  5. DONEPEZIL HCL [Concomitant]
  6. RISPERIDONE [Concomitant]
  7. AMITRIPTYLINE HCL [Concomitant]
     Dosage: UNK
  8. HALOPIDOL [Concomitant]

REACTIONS (7)
  - DAYDREAMING [None]
  - GAIT DISTURBANCE [None]
  - HYPOKINESIA [None]
  - MUSCLE RIGIDITY [None]
  - SOMNOLENCE [None]
  - SPEECH DISORDER [None]
  - WEIGHT DECREASED [None]
